FAERS Safety Report 4735707-X (Version None)
Quarter: 2005Q3

REPORT INFORMATION
  Report Type: 
  Country: None (occurrence: None)
  Receive Date: 20050805
  Receipt Date: 20050608
  Transmission Date: 20060218
  Serious: Yes (Hospitalization)
  Sender: FDA-Public Use
  Company Number: US-BRISTOL-MYERS SQUIBB COMPANY-12998167

PATIENT
  Age: 17 Year
  Sex: Female

DRUGS (6)
  1. ABILIFY [Suspect]
     Indication: DEPRESSION
     Dates: start: 20050117, end: 20050531
  2. LEXAPRO [Suspect]
     Indication: DEPRESSION
     Route: 048
     Dates: start: 20040625, end: 20050531
  3. ELAVIL [Suspect]
     Indication: DEPRESSION
     Route: 048
     Dates: end: 20050531
  4. KLONOPIN [Suspect]
     Indication: DEPRESSION
     Dates: start: 20040625, end: 20050531
  5. RITALIN [Suspect]
     Indication: DEPRESSION
     Dates: start: 20050201, end: 20050601
  6. GEODON [Suspect]
     Indication: DEPRESSION
     Route: 048
     Dates: start: 20050430, end: 20050531

REACTIONS (7)
  - DEPRESSION [None]
  - DRUG INEFFECTIVE [None]
  - HALLUCINATION [None]
  - INTENTIONAL MISUSE [None]
  - POST-TRAUMATIC STRESS DISORDER [None]
  - SUICIDAL IDEATION [None]
  - SUICIDE ATTEMPT [None]
